FAERS Safety Report 14679522 (Version 2)
Quarter: 2018Q2

REPORT INFORMATION
  Report Type: Report from Study
  Country: US (occurrence: US)
  Receive Date: 20180326
  Receipt Date: 20180412
  Transmission Date: 20180711
  Serious: Yes (Hospitalization)
  Sender: FDA-Public Use
  Company Number: US-JAZZ-2018-US-004241

PATIENT
  Age: 56 Year
  Sex: Female

DRUGS (15)
  1. CITALOPRAM [Concomitant]
     Active Substance: CITALOPRAM HYDROBROMIDE
  2. TRAZODONE [Concomitant]
     Active Substance: TRAZODONE HYDROCHLORIDE
  3. VITAMIN D3 [Concomitant]
     Active Substance: CHOLECALCIFEROL
  4. XYREM [Suspect]
     Active Substance: SODIUM OXYBATE
     Indication: NARCOLEPSY
     Dosage: 2.25 G, BID
     Route: 048
     Dates: start: 20180307
  5. LEVAQUIN [Concomitant]
     Active Substance: LEVOFLOXACIN
  6. SPIRONOLACTONE. [Concomitant]
     Active Substance: SPIRONOLACTONE
  7. TIAGABINE HCL [Concomitant]
  8. CARVEDILOL. [Concomitant]
     Active Substance: CARVEDILOL
  9. GLIPIZIDE. [Concomitant]
     Active Substance: GLIPIZIDE
  10. LORATADINE. [Concomitant]
     Active Substance: LORATADINE
  11. XYREM [Suspect]
     Active Substance: SODIUM OXYBATE
     Indication: CATAPLEXY
  12. AMLODIPINE BESYLATE. [Concomitant]
     Active Substance: AMLODIPINE BESYLATE
  13. CLONAZEPAM. [Concomitant]
     Active Substance: CLONAZEPAM
  14. METFORMIN HCL [Concomitant]
     Active Substance: METFORMIN HYDROCHLORIDE
  15. TOLTERODINE TARTRA [Concomitant]

REACTIONS (6)
  - Nasopharyngitis [Not Recovered/Not Resolved]
  - Cough [Not Recovered/Not Resolved]
  - Intervertebral disc protrusion [Unknown]
  - Feeling hot [Not Recovered/Not Resolved]
  - Nausea [Unknown]
  - Somnolence [Unknown]

NARRATIVE: CASE EVENT DATE: 201803
